FAERS Safety Report 9634256 (Version 2)
Quarter: 2013Q4

REPORT INFORMATION
  Report Type: Report from Study
  Country: US (occurrence: US)
  Receive Date: 20131021
  Receipt Date: 20131021
  Transmission Date: 20140711
  Serious: Yes (Other)
  Sender: FDA-Public Use
  Company Number: US-JNJFOC-20130502875

PATIENT
  Sex: Female

DRUGS (1)
  1. STELARA [Suspect]
     Indication: PRODUCT USED FOR UNKNOWN INDICATION
     Dosage: ^PARTNER^S DOSING^
     Route: 065
     Dates: start: 201303

REACTIONS (2)
  - Premature labour [Recovered/Resolved]
  - Exposure via father [Recovered/Resolved]
